FAERS Safety Report 22518060 (Version 1)
Quarter: 2023Q2

REPORT INFORMATION
  Report Type: Report from Study
  Country: US (occurrence: US)
  Receive Date: 20230605
  Receipt Date: 20230605
  Transmission Date: 20230722
  Serious: Yes (Hospitalization)
  Sender: FDA-Public Use
  Company Number: US-ABBVIE-5188087

PATIENT
  Age: 71 Year
  Sex: Female

DRUGS (1)
  1. HUMIRA [Suspect]
     Active Substance: ADALIMUMAB
     Indication: Rheumatoid arthritis
     Dosage: CF
     Route: 058
     Dates: start: 20230316

REACTIONS (3)
  - Haemorrhage [Recovered/Resolved]
  - Faeces discoloured [Recovered/Resolved]
  - Mineral supplementation [Recovered/Resolved]

NARRATIVE: CASE EVENT DATE: 20230501
